FAERS Safety Report 9620319 (Version 2)
Quarter: 2013Q4

REPORT INFORMATION
  Report Type: Spontaneous
  Country: US (occurrence: US)
  Receive Date: 20131014
  Receipt Date: 20131014
  Transmission Date: 20140711
  Serious: No
  Sender: FDA-Public Use
  Company Number: US-ALLERGAN-1215343US

PATIENT
  Age: 56 Year
  Sex: Male

DRUGS (4)
  1. ALPHAGAN P [Suspect]
     Indication: INTRAOCULAR PRESSURE INCREASED
     Dosage: 2 GTT, BID
     Route: 047
  2. TRAVATAN Z [Concomitant]
     Indication: INTRAOCULAR PRESSURE INCREASED
     Dosage: 2 GTT, QHS
     Route: 047
  3. LIPITOR [Concomitant]
     Indication: BLOOD CHOLESTEROL INCREASED
     Dosage: 20 MG, QAM
     Route: 048
  4. NASONEX [Concomitant]
     Indication: SEASONAL ALLERGY
     Dosage: UNK UNK, PRN
     Route: 055

REACTIONS (7)
  - Eyelid irritation [Recovered/Resolved]
  - Eye discharge [Recovered/Resolved]
  - Eyelid irritation [Recovered/Resolved]
  - Blepharitis [Recovered/Resolved]
  - Eye pruritus [Recovered/Resolved]
  - Therapeutic response decreased [Unknown]
  - Drug hypersensitivity [Unknown]
